FAERS Safety Report 8168018-3 (Version None)
Quarter: 2012Q1

REPORT INFORMATION
  Report Type: 
  Country: None (occurrence: None)
  Receive Date: 20120227
  Receipt Date: 20120214
  Transmission Date: 20120608
  Serious: Yes (Hospitalization)
  Sender: FDA-Public Use
  Company Number: PHHY2012FR013091

PATIENT
  Sex: Female

DRUGS (8)
  1. MOTILIUM [Concomitant]
     Dosage: UNK UKN, TID
  2. GLEEVEC [Suspect]
     Dosage: 400 MG, DAILY
     Dates: start: 20100201
  3. PHENOXYMETHYL PENICILLIN [Concomitant]
  4. TEMAZEPAM [Concomitant]
     Dosage: ONCE DAILY
  5. VALACYCLOVIR HYDROCHLORIDE [Concomitant]
     Dosage: 2 DF, DAILY
  6. VACCINES [Concomitant]
  7. CLONAZEPAM [Concomitant]
     Dosage: 10 DROP, DAILY
  8. PANTOPRAZOLE SODIUM [Concomitant]
     Dosage: 40 MG, QD

REACTIONS (3)
  - SEPTIC SHOCK [None]
  - MENINGITIS PNEUMOCOCCAL [None]
  - HYPERTHERMIA [None]
